FAERS Safety Report 11986765 (Version 1)
Quarter: 2016Q1

REPORT INFORMATION
  Report Type: Spontaneous
  Country: US (occurrence: US)
  Receive Date: 20160202
  Receipt Date: 20160202
  Transmission Date: 20160526
  Serious: No
  Sender: FDA-Public Use
  Company Number: US-UCBSA-2015006565

PATIENT
  Sex: Male

DRUGS (3)
  1. EPILIM [Concomitant]
     Active Substance: VALPROATE SODIUM
     Indication: EPILEPSY
     Dosage: UNK
  2. KEPPRA [Suspect]
     Active Substance: LEVETIRACETAM
     Dosage: CLOSE TO FULL DOSE
  3. KEPPRA [Suspect]
     Active Substance: LEVETIRACETAM
     Indication: EPILEPSY
     Dosage: UNK

REACTIONS (8)
  - Fatigue [Unknown]
  - Decreased interest [Unknown]
  - Posture abnormal [Unknown]
  - Unevaluable event [Unknown]
  - Nasopharyngitis [Unknown]
  - Balance disorder [Unknown]
  - Decreased appetite [Unknown]
  - Tremor [Unknown]
